FAERS Safety Report 6959631-7 (Version None)
Quarter: 2010Q3

REPORT INFORMATION
  Report Type: 
  Country: None (occurrence: None)
  Receive Date: 20100827
  Receipt Date: 20100818
  Transmission Date: 20110219
  Serious: Yes (Other)
  Sender: FDA-Public Use
  Company Number: 201007AGG00942

PATIENT
  Sex: Female

DRUGS (4)
  1. TIROFIBAN HYDROCHLORIDE (AGGRASTAT (TIROFIBAN HCL)  ) [Suspect]
     Indication: THROMBOSIS
     Dosage: (DOSE UNKNOWN INTRAVENOUS (NOT OTHERWISE SPECIFIED))
     Route: 042
  2. HEPARIN SODIUM [Concomitant]
  3. ASPIRIN [Concomitant]
  4. CLOPIDOGREL BISULFATE [Concomitant]

REACTIONS (5)
  - DRUG INEFFECTIVE [None]
  - HEMIPARESIS [None]
  - OFF LABEL USE [None]
  - THROMBOSIS IN DEVICE [None]
  - TREATMENT NONCOMPLIANCE [None]
